FAERS Safety Report 8889525 (Version 1)
Quarter: 2012Q4

REPORT INFORMATION
  Report Type: 
  Country: GB (occurrence: GB)
  Receive Date: 20121107
  Receipt Date: 20121107
  Transmission Date: 20130627
  Serious: Yes (Other)
  Sender: FDA-Public Use
  Company Number: PHHY2012GB099853

PATIENT
  Age: 53 Year
  Sex: Female

DRUGS (3)
  1. METRONIDAZOLE [Suspect]
     Indication: TOOTH INFECTION
     Dosage: 200 mg,3 tabs taken.
     Route: 048
     Dates: start: 20121016, end: 20121017
  2. PAROXETINE [Concomitant]
     Indication: ANXIETY
     Route: 048
  3. AMOXICILLIN [Concomitant]
     Indication: TOOTH INFECTION
     Dosage: 500 mg
     Route: 048
     Dates: start: 20121016

REACTIONS (3)
  - Abdominal distension [Recovered/Resolved]
  - Malaise [Recovered/Resolved]
  - Pain [Recovered/Resolved]
